FAERS Safety Report 5971722-6 (Version None)
Quarter: 2008Q4

REPORT INFORMATION
  Report Type: 
  Country: None (occurrence: None)
  Receive Date: 20081201
  Receipt Date: 20081125
  Transmission Date: 20090506
  Serious: Yes (Hospitalization)
  Sender: FDA-Public Use
  Company Number: NZ-JNJFOC-20081103296

PATIENT
  Sex: Female

DRUGS (2)
  1. RISPERDAL CONSTA [Suspect]
     Indication: PSYCHOTIC DISORDER
     Route: 030
  2. RISPERDAL CONSTA [Suspect]
     Indication: AFFECTIVE DISORDER
     Dosage: 25MG OR 37.5MG FOR 4-6 MONTHS
     Route: 030

REACTIONS (4)
  - APATHY [None]
  - COGNITIVE DISORDER [None]
  - FATIGUE [None]
  - INCONTINENCE [None]
